APPROVED DRUG PRODUCT: QAMZOVA
Active Ingredient: MELOXICAM
Strength: 30MG/ML (30MG/ML)
Dosage Form/Route: SOLUTION;INTRAVENOUS
Application: N217593 | Product #001
Applicant: NANJING DELOVA BIOTECH CO LTD
Approved: Apr 22, 2025 | RLD: Yes | RS: Yes | Type: RX

PATENTS:
Patent 12059423 | Expires: Jul 19, 2040